FAERS Safety Report 5507745-0 (Version None)
Quarter: 2007Q4

REPORT INFORMATION
  Report Type: 
  Country: None (occurrence: None)
  Receive Date: 20071105
  Receipt Date: 20071105
  Transmission Date: 20080405
  Serious: No
  Sender: FDA-Public Use
  Company Number: None

PATIENT
  Sex: Female
  Weight: 33.294 kg

DRUGS (2)
  1. VANCOMYCIN [Suspect]
     Indication: OSTEOMYELITIS
     Dosage: 1250 MG EVERY 12 HOURS IV
     Route: 042
     Dates: start: 20071005, end: 20071030
  2. VANCOMYCIN [Suspect]

REACTIONS (1)
  - UNEVALUABLE EVENT [None]
